FAERS Safety Report 5237888-0 (Version None)
Quarter: 2007Q1

REPORT INFORMATION
  Report Type: 
  Country: None (occurrence: None)
  Receive Date: 20070214
  Receipt Date: 20070207
  Transmission Date: 20070707
  Serious: Yes (Hospitalization, Other)
  Sender: FDA-Public Use
  Company Number: US-BOEHRINGER INGELHEIM PHARMACEUTICALS, INC.-2007-BP-02012PF

PATIENT
  Sex: Female
  Weight: 52 kg

DRUGS (12)
  1. SPIRIVA [Suspect]
     Indication: EMPHYSEMA
  2. CHANTIX [Suspect]
     Indication: SMOKING CESSATION THERAPY
     Dates: start: 20060101, end: 20070101
  3. ADVAIR DISKUS 100/50 [Suspect]
     Indication: EMPHYSEMA
  4. XOPENEX [Suspect]
     Indication: EMPHYSEMA
  5. TARCEVA [Concomitant]
  6. LASIX [Concomitant]
  7. POTASSIUM ACETATE [Concomitant]
  8. ASPIRIN [Concomitant]
  9. ATIVAN [Concomitant]
  10. OXYCODONE HCL EXTENDED-RELEASE [Concomitant]
  11. OXYCODONE HCL [Concomitant]
  12. PREDNISONE [Concomitant]

REACTIONS (2)
  - DRUG EFFECT DECREASED [None]
  - DYSPNOEA [None]
